FAERS Safety Report 5068343-9 (Version None)
Quarter: 2006Q3

REPORT INFORMATION
  Report Type: 
  Country: None (occurrence: None)
  Receive Date: 20060802
  Receipt Date: 20050808
  Transmission Date: 20061208
  Serious: No
  Sender: FDA-Public Use
  Company Number: US-BRISTOL-MYERS SQUIBB COMPANY-13068390

PATIENT
  Sex: Female

DRUGS (1)
  1. COUMADIN [Suspect]
     Route: 048

REACTIONS (6)
  - DIZZINESS [None]
  - DYSPNOEA [None]
  - HYPOAESTHESIA [None]
  - PAIN IN EXTREMITY [None]
  - POLLAKIURIA [None]
  - PRURITUS [None]
